FAERS Safety Report 12130068 (Version 2)
Quarter: 2019Q1

REPORT INFORMATION
  Report Type: Spontaneous
  Country: US (occurrence: US)
  Receive Date: 20160229
  Receipt Date: 20190127
  Transmission Date: 20190417
  Serious: No
  Sender: FDA-Public Use
  Company Number: US-ACORDA-ACO_29811_2012

PATIENT
  Age: 47 Year
  Sex: Male
  Weight: 72.56 kg

DRUGS (6)
  1. MUSCLE RELAXANTS [Concomitant]
     Active Substance: UNSPECIFIED INGREDIENT
     Indication: HYPOTONIA
     Dosage: UNK, PRN
     Dates: start: 201201
  2. AMPYRA [Suspect]
     Active Substance: DALFAMPRIDINE
     Indication: GAIT DISTURBANCE
     Dosage: 10 MG, BID
     Route: 048
     Dates: start: 201110
  3. LAMOTRIGINE. [Concomitant]
     Active Substance: LAMOTRIGINE
     Indication: PRODUCT USED FOR UNKNOWN INDICATION
     Dosage: UNK
     Route: 065
  4. AMPYRA [Suspect]
     Active Substance: DALFAMPRIDINE
     Indication: MULTIPLE SCLEROSIS
  5. TECFIDERA [Concomitant]
     Active Substance: DIMETHYL FUMARATE
     Indication: PRODUCT USED FOR UNKNOWN INDICATION
     Dosage: UNK
     Route: 065
  6. GILENYA [Suspect]
     Active Substance: FINGOLIMOD HYDROCHLORIDE
     Indication: PRODUCT USED FOR UNKNOWN INDICATION
     Dosage: UNK
     Route: 065
     Dates: start: 2011, end: 20130526

REACTIONS (11)
  - Diarrhoea [Unknown]
  - Mood swings [Unknown]
  - Drug effect decreased [Unknown]
  - Inappropriate schedule of product administration [Unknown]
  - Multiple sclerosis [Unknown]
  - Chest pain [Not Recovered/Not Resolved]
  - White blood cell count decreased [Unknown]
  - Product dose omission [Unknown]
  - Aggression [Not Recovered/Not Resolved]
  - Tremor [Unknown]
  - Back pain [Not Recovered/Not Resolved]

NARRATIVE: CASE EVENT DATE: 201105
